FAERS Safety Report 24707456 (Version 1)
Quarter: 2024Q4

REPORT INFORMATION
  Report Type: Spontaneous
  Country: ES (occurrence: ES)
  Receive Date: 20241206
  Receipt Date: 20241206
  Transmission Date: 20250115
  Serious: Yes (Hospitalization)
  Sender: TEVA
  Company Number: None

PATIENT
  Age: 92 Year
  Sex: Male

DRUGS (5)
  1. MIRTAZAPINE [Suspect]
     Active Substance: MIRTAZAPINE
     Indication: Insomnia
     Dosage: MIRTAZAPINE (2704A)
     Route: 048
     Dates: start: 20240918
  2. TEICOPLANIN [Suspect]
     Active Substance: TEICOPLANIN
     Indication: Post procedural infection
     Dosage: TEICOPLANINA (2474A)
     Route: 042
     Dates: start: 20240918, end: 20240925
  3. MEROPENEM [Suspect]
     Active Substance: MEROPENEM
     Indication: Post procedural infection
     Dosage: MEROPENEM (7155A)
     Route: 042
     Dates: start: 20240918
  4. ENOXAPARIN SODIUM [Suspect]
     Active Substance: ENOXAPARIN SODIUM
     Indication: Thrombosis prophylaxis
     Dosage: ENOXAPARIN SODIUM (2482SO)
     Route: 058
     Dates: start: 20240918
  5. QUETIAPINE [Suspect]
     Active Substance: QUETIAPINE
     Indication: Insomnia
     Dosage: QUETIAPINE (1136A)
     Route: 048
     Dates: start: 20240918

REACTIONS (1)
  - Eosinophilia [Unknown]

NARRATIVE: CASE EVENT DATE: 20241002
